FAERS Safety Report 6349251-X (Version None)
Quarter: 2009Q3

REPORT INFORMATION
  Report Type: 
  Country: None (occurrence: None)
  Receive Date: 20090911
  Receipt Date: 20090908
  Transmission Date: 20100115
  Serious: Yes (Disabling)
  Sender: FDA-Public Use
  Company Number: A0751111A

PATIENT
  Age: 72 Year
  Sex: Female
  Weight: 59.1 kg

DRUGS (8)
  1. DYNACIRC CR [Suspect]
     Indication: HYPERTENSION
     Dosage: 10MG PER DAY
     Route: 048
     Dates: start: 20020101
  2. ISRADIPINE [Suspect]
     Indication: HYPERTENSION
     Route: 048
     Dates: start: 20080101, end: 20081002
  3. PREDNISONE [Concomitant]
     Dates: start: 20070601
  4. PYRIDOSTIGMINE BROMIDE [Concomitant]
     Dates: start: 20070601
  5. DYAZIDE [Concomitant]
     Dates: start: 19990101
  6. COZAAR [Concomitant]
     Dates: start: 19990101
  7. MOBIC [Concomitant]
     Dates: start: 20020101
  8. METFORMIN HCL [Concomitant]
     Dates: start: 19950101

REACTIONS (2)
  - GINGIVAL PAIN [None]
  - TOOTHACHE [None]
